FAERS Safety Report 10738325 (Version 1)
Quarter: 2015Q1

REPORT INFORMATION
  Report Type: Spontaneous
  Country: US (occurrence: None)
  Receive Date: 20150122
  Receipt Date: 20150122
  Transmission Date: 20150721
  Serious: No
  Sender: FDA-Public Use
  Company Number: None

PATIENT
  Age: 44 Year
  Sex: Male
  Weight: 102.06 kg

DRUGS (4)
  1. CLONAZEPAM. [Suspect]
     Active Substance: CLONAZEPAM
     Indication: ANXIETY
     Route: 048
     Dates: start: 20141222, end: 20150103
  2. COQ10 [Concomitant]
     Active Substance: UBIDECARENONE
  3. MULTI VITAMIN [Concomitant]
     Active Substance: VITAMINS
  4. NEURORUNTIN [Concomitant]

REACTIONS (8)
  - Product substitution issue [None]
  - Fatigue [None]
  - Hyperhidrosis [None]
  - Product quality issue [None]
  - Withdrawal syndrome [None]
  - Insomnia [None]
  - Presbyopia [None]
  - Irritability [None]

NARRATIVE: CASE EVENT DATE: 20140122
